FAERS Safety Report 4663396-1 (Version None)
Quarter: 2005Q2

REPORT INFORMATION
  Report Type: 
  Country: None (occurrence: None)
  Receive Date: 20050517
  Receipt Date: 20050310
  Transmission Date: 20051028
  Serious: Yes (Other)
  Sender: FDA-Public Use
  Company Number: CA-AMGEN-US120857

PATIENT
  Sex: Female
  Weight: 40 kg

DRUGS (6)
  1. ENBREL [Suspect]
     Indication: RHEUMATOID ARTHRITIS
     Route: 058
     Dates: start: 20020801, end: 20050201
  2. ARAVA [Concomitant]
  3. PREDNISONE [Concomitant]
  4. CELEBREX [Concomitant]
  5. PLAQUENIL [Concomitant]
  6. MORPHINE [Concomitant]

REACTIONS (4)
  - DEMYELINATION [None]
  - MIGRAINE [None]
  - PARAESTHESIA [None]
  - VASCULITIS [None]
